FAERS Safety Report 16892376 (Version 1)
Quarter: 2019Q4

REPORT INFORMATION
  Report Type: Spontaneous
  Country: GB (occurrence: GB)
  Receive Date: 20191007
  Receipt Date: 20191007
  Transmission Date: 20200122
  Serious: Yes (Hospitalization)
  Sender: FDA-Public Use
  Company Number: GB-MYLANLABS-2019M1092299

PATIENT
  Age: 40 Year
  Sex: Male

DRUGS (1)
  1. ZOLMITRIPTAN. [Suspect]
     Active Substance: ZOLMITRIPTAN
     Indication: PRODUCT USED FOR UNKNOWN INDICATION
     Dosage: 2.5 MILLIGRAM
     Route: 048

REACTIONS (2)
  - Expired product administered [Unknown]
  - Malaise [Unknown]

NARRATIVE: CASE EVENT DATE: 20190409
